FAERS Safety Report 4727707-0 (Version None)
Quarter: 2005Q3

REPORT INFORMATION
  Report Type: 
  Country: None (occurrence: None)
  Receive Date: 20050725
  Receipt Date: 20050519
  Transmission Date: 20060218
  Serious: No
  Sender: FDA-Public Use
  Company Number: USA050597058

PATIENT
  Sex: Male

DRUGS (1)
  1. STRATTERA [Suspect]

REACTIONS (6)
  - ANGER [None]
  - DEPRESSION [None]
  - DIARRHOEA [None]
  - INSOMNIA [None]
  - VERBAL ABUSE [None]
  - VOMITING [None]
